FAERS Safety Report 11490224 (Version 1)
Quarter: 2015Q3

REPORT INFORMATION
  Report Type: Spontaneous
  Country: CA (occurrence: CA)
  Receive Date: 20150909
  Receipt Date: 20150909
  Transmission Date: 20151125
  Serious: Yes (Disabling)
  Sender: FDA-Public Use
  Company Number: CA-TEVA-592028ACC

PATIENT
  Age: 16 Year
  Sex: Female
  Weight: 52 kg

DRUGS (22)
  1. VINCRISTINE SULFATE INJECTION USP [Suspect]
     Active Substance: VINCRISTINE SULFATE
     Route: 042
  2. CYCLOPHOSPHAMIDE. [Concomitant]
     Active Substance: CYCLOPHOSPHAMIDE
  3. GRANULOCYTE COLONY STIMULATING FACTOR (G-CSF) [Concomitant]
  4. METOCLOPRAMIDE. [Concomitant]
     Active Substance: METOCLOPRAMIDE
  5. SENNOSIDES. [Concomitant]
     Active Substance: SENNOSIDES
  6. VINCRISTINE SULFATE INJECTION USP [Suspect]
     Active Substance: VINCRISTINE SULFATE
     Indication: HODGKIN^S DISEASE
     Route: 042
  7. AMITRIPTYLINE [Concomitant]
     Active Substance: AMITRIPTYLINE
  8. DOCUSATE SODIUM. [Concomitant]
     Active Substance: DOCUSATE SODIUM
  9. VINCRISTINE SULFATE INJECTION USP [Suspect]
     Active Substance: VINCRISTINE SULFATE
     Route: 042
  10. DESOGESTREL AND ETHINYL ESTRADIOL [Concomitant]
     Active Substance: DESOGESTREL\ETHINYL ESTRADIOL
  11. ONDANSETRON [Concomitant]
     Active Substance: ONDANSETRON
  12. POLYETHYLENE GLYCOL 3350. [Concomitant]
     Active Substance: POLYETHYLENE GLYCOL 3350
     Route: 048
  13. VINCRISTINE SULFATE INJECTION USP [Suspect]
     Active Substance: VINCRISTINE SULFATE
     Route: 042
  14. PENTAMIDINE ISETHIONATE INJ 300MG/VIAL BP [Concomitant]
  15. BLEOMYCIN FOR INJECTION, USP [Concomitant]
     Route: 013
  16. PREDNISONE. [Concomitant]
     Active Substance: PREDNISONE
  17. NABILONE [Concomitant]
     Active Substance: NABILONE
  18. CODEINE [Concomitant]
     Active Substance: CODEINE
  19. ACETAMINOPHEN. [Concomitant]
     Active Substance: ACETAMINOPHEN
  20. DOXORUBICIN [Concomitant]
     Active Substance: DOXORUBICIN
     Route: 042
  21. ETOPOSIDE. [Concomitant]
     Active Substance: ETOPOSIDE
  22. GRANISETRON [Concomitant]
     Active Substance: GRANISETRON

REACTIONS (5)
  - Abdominal pain [Recovered/Resolved]
  - Pain in extremity [Recovered/Resolved]
  - Constipation [Recovered/Resolved]
  - Autonomic neuropathy [Recovered/Resolved]
  - Neuropathy peripheral [Recovered/Resolved]
